FAERS Safety Report 9992733 (Version 2)
Quarter: 2014Q2

REPORT INFORMATION
  Report Type: Spontaneous
  Country: DE (occurrence: DE)
  Receive Date: 20140310
  Receipt Date: 20140428
  Transmission Date: 20141212
  Serious: Yes (Other)
  Sender: FDA-Public Use
  Company Number: PHHY2014DE028530

PATIENT
  Age: 40 Year
  Sex: 0

DRUGS (2)
  1. SANDOSTATIN LAR [Suspect]
     Dosage: 30 MG, EVERY 28 DAYS
  2. INTERFERON ALFA [Concomitant]
     Dosage: UNK UKN, UNK

REACTIONS (1)
  - Metastasis [Unknown]
